FAERS Safety Report 4422238-X (Version None)
Quarter: 2004Q3

REPORT INFORMATION
  Report Type: 
  Country: None (occurrence: None)
  Receive Date: 20040810
  Receipt Date: 20040730
  Transmission Date: 20050211
  Serious: Yes (Life-Threatening)
  Sender: FDA-Public Use
  Company Number: ZA-JNJFOC-20040707974

PATIENT
  Age: 74 Year
  Sex: Male

DRUGS (6)
  1. GALANTAMINE [Suspect]
     Route: 065
  2. GALANTAMINE [Suspect]
     Indication: DRUG USE FOR UNKNOWN INDICATION
     Route: 065
  3. EFFEXOR [Concomitant]
     Route: 065
  4. ASPIRIN [Concomitant]
     Route: 065
  5. LIPITOR [Concomitant]
     Route: 065
  6. HYTRIN [Concomitant]
     Route: 065

REACTIONS (1)
  - ACUTE PULMONARY OEDEMA [None]
